FAERS Safety Report 25602365 (Version 1)
Quarter: 2025Q3

REPORT INFORMATION
  Report Type: Spontaneous
  Country: US (occurrence: US)
  Receive Date: 20250724
  Receipt Date: 20250724
  Transmission Date: 20251020
  Serious: No
  Sender: PFIZER
  Company Number: US-PFIZER INC-202500149553

PATIENT
  Age: 59 Year
  Sex: Female

DRUGS (8)
  1. IBRANCE [Suspect]
     Active Substance: PALBOCICLIB
     Dates: start: 20250617
  2. IBRANCE [Suspect]
     Active Substance: PALBOCICLIB
  3. ADVAIR HFA [Suspect]
     Active Substance: FLUTICASONE PROPIONATE\SALMETEROL XINAFOATE
  4. ALBUTEROL SULFATE [Concomitant]
     Active Substance: ALBUTEROL SULFATE
  5. ANASTROZOLE [Concomitant]
     Active Substance: ANASTROZOLE
  6. BUPROPION [Concomitant]
     Active Substance: BUPROPION
  7. LORATADINE [Concomitant]
     Active Substance: LORATADINE
  8. ONDANSETRON [Concomitant]
     Active Substance: ONDANSETRON

REACTIONS (2)
  - White blood cell count decreased [Recovering/Resolving]
  - Platelet count increased [Recovering/Resolving]

NARRATIVE: CASE EVENT DATE: 20250101
